FAERS Safety Report 6553973-5 (Version None)
Quarter: 2010Q1

REPORT INFORMATION
  Report Type: 
  Country: None (occurrence: None)
  Receive Date: 20100127
  Receipt Date: 20100120
  Transmission Date: 20100710
  Serious: Yes (Death, Other)
  Sender: FDA-Public Use
  Company Number: GB-JNJFOC-20100107865

PATIENT
  Age: 24 Year
  Sex: Female

DRUGS (12)
  1. ITRACONAZOLE [Suspect]
     Indication: PROPHYLAXIS AGAINST TRANSPLANT REJECTION
     Route: 048
  2. AMPHOTERICIN B [Suspect]
     Indication: PROPHYLAXIS AGAINST TRANSPLANT REJECTION
     Dosage: NEBULISED AMPHOTERICIN WAS ADMINISTERED
     Route: 045
  3. AZATHIOPRINE [Suspect]
     Indication: IMMUNOSUPPRESSION
     Route: 048
  4. CYCLOSPORINE [Suspect]
     Indication: IMMUNOSUPPRESSION
     Route: 048
  5. METHYLPREDNISOLONE [Suspect]
     Indication: IMMUNOSUPPRESSION
     Route: 042
  6. PREDNISOLONE [Suspect]
     Indication: IMMUNOSUPPRESSION
     Route: 065
  7. VANCOMYCIN [Concomitant]
     Indication: ENDOPHTHALMITIS
     Route: 031
  8. AMIKACIN [Concomitant]
     Indication: ENDOPHTHALMITIS
     Route: 031
  9. AMPHOTERICIN B [Concomitant]
     Indication: ENDOPHTHALMITIS
     Route: 031
  10. VORICONAZOLE [Concomitant]
     Indication: ENDOPHTHALMITIS
     Route: 042
  11. SEPTRIN [Concomitant]
     Indication: ENDOPHTHALMITIS
     Route: 042
  12. CIPROFLOXACIN [Concomitant]
     Indication: ENDOPHTHALMITIS
     Route: 042

REACTIONS (7)
  - CIRCULATORY COLLAPSE [None]
  - DYSPNOEA [None]
  - EYE INFECTION FUNGAL [None]
  - FUNGAL ENDOCARDITIS [None]
  - INTESTINAL INFARCTION [None]
  - SEPSIS [None]
  - SEPTIC EMBOLUS [None]
